FAERS Safety Report 12759043 (Version 1)
Quarter: 2016Q3

REPORT INFORMATION
  Report Type: Report from Study
  Country: JP (occurrence: JP)
  Receive Date: 20160919
  Receipt Date: 20160919
  Transmission Date: 20161109
  Serious: Yes (Other)
  Sender: FDA-Public Use
  Company Number: JP-PFIZER INC-2016420982

PATIENT

DRUGS (2)
  1. TEGAFUR URACIL [Suspect]
     Active Substance: TEGAFUR
     Indication: COLORECTAL CANCER METASTATIC
     Dosage: 300 MG/M2, DAILY, (EVERY 8 H FOR 28 DAYS FOLLOWED BY A 7-DAY REST (ONE CYCLE))
     Route: 048
  2. LEUCOVORIN. [Suspect]
     Active Substance: LEUCOVORIN
     Indication: COLORECTAL CANCER METASTATIC
     Dosage: 75 MG/M2,  DAILY, (EVERY 8 H FOR 28 DAYS FOLLOWED BY A 7-DAY REST (ONE CYCLE))
     Route: 048

REACTIONS (1)
  - Leukopenia [Unknown]
